FAERS Safety Report 4999639-4 (Version None)
Quarter: 2006Q2

REPORT INFORMATION
  Report Type: 
  Country: None (occurrence: None)
  Receive Date: 20060511
  Receipt Date: 20051026
  Transmission Date: 20061013
  Serious: Yes (Hospitalization)
  Sender: FDA-Public Use
  Company Number: US-MERCK-0510USA09487

PATIENT
  Age: 56 Year
  Sex: Male
  Weight: 93 kg

DRUGS (8)
  1. VIOXX [Suspect]
     Indication: ARTHRITIS
     Route: 048
     Dates: start: 20030324, end: 20040927
  2. ZESTRIL [Concomitant]
     Route: 065
     Dates: start: 19990101
  3. VERAPAMIL [Concomitant]
     Route: 065
     Dates: start: 20030324, end: 20031201
  4. ATENOLOL [Concomitant]
     Route: 065
     Dates: start: 20030324
  5. FLONASE [Concomitant]
     Route: 065
  6. WARFARIN [Concomitant]
     Route: 065
     Dates: start: 20001124
  7. HYZAAR [Concomitant]
     Route: 065
  8. CENTRUM [Concomitant]
     Route: 065

REACTIONS (14)
  - BLOOD CHOLESTEROL [None]
  - CHEST DISCOMFORT [None]
  - DEEP VEIN THROMBOSIS [None]
  - DILATATION VENTRICULAR [None]
  - DYSPNOEA [None]
  - HYPOTENSION [None]
  - HYPOXIA [None]
  - LOSS OF CONSCIOUSNESS [None]
  - OEDEMA PERIPHERAL [None]
  - PULMONARY EMBOLISM [None]
  - PULMONARY HYPERTENSION [None]
  - RIGHT VENTRICULAR SYSTOLIC PRESSURE INCREASED [None]
  - TRICUSPID VALVE INCOMPETENCE [None]
  - VENTRICULAR HYPOKINESIA [None]
